FAERS Safety Report 5223839-1 (Version None)
Quarter: 2007Q1

REPORT INFORMATION
  Report Type: 
  Country: None (occurrence: None)
  Receive Date: 20070130
  Receipt Date: 20070124
  Transmission Date: 20070707
  Serious: Yes (Hospitalization)
  Sender: FDA-Public Use
  Company Number: US-ELI_LILLY_AND_COMPANY-US200606003073

PATIENT
  Sex: Female
  Weight: 77.097 kg

DRUGS (5)
  1. ZYPREXA [Suspect]
     Dosage: 10 MG, UNK
     Dates: start: 20040106
  2. ZYPREXA [Suspect]
     Dosage: 40 MG, UNK
  3. ABILIFY [Concomitant]
     Dosage: 10 MG, 2/D
     Dates: start: 20050601, end: 20051201
  4. WELLBUTRIN XL [Concomitant]
     Dosage: 150 MG, UNK
     Dates: start: 20040106
  5. ZOLOFT [Concomitant]
     Dosage: 200 MG, UNK
     Dates: start: 20040106

REACTIONS (8)
  - CARDIAC DISORDER [None]
  - DIABETES MELLITUS [None]
  - HALLUCINATION, AUDITORY [None]
  - HYPERTENSION [None]
  - OVERWEIGHT [None]
  - PALPITATIONS [None]
  - PRESCRIBED OVERDOSE [None]
  - SWELLING [None]
